FAERS Safety Report 10736373 (Version 3)
Quarter: 2015Q2

REPORT INFORMATION
  Report Type: Spontaneous
  Country: CZ (occurrence: CZ)
  Receive Date: 20150126
  Receipt Date: 20150623
  Transmission Date: 20150821
  Serious: Yes (Death, Hospitalization)
  Sender: FDA-Public Use
  Company Number: CZ-CELGENE-CZE-2014104620

PATIENT
  Age: 78 Year
  Sex: Male
  Weight: 72 kg

DRUGS (19)
  1. REVLIMID [Suspect]
     Active Substance: LENALIDOMIDE
     Dosage: 100 MILLIGRAM
     Route: 048
     Dates: end: 20141130
  2. DEXAMETHASONE. [Suspect]
     Active Substance: DEXAMETHASONE
     Indication: PLASMA CELL MYELOMA
     Route: 048
     Dates: start: 20131111
  3. KALNORMIN [Concomitant]
     Active Substance: POTASSIUM CHLORIDE
     Indication: HYPOKALAEMIA
     Route: 048
     Dates: start: 20080701
  4. APO-ALLOPURINOL [Concomitant]
     Active Substance: ALLOPURINOL
     Indication: HYPERURICAEMIA
     Route: 048
     Dates: start: 20131111
  5. DICLOFENAC DUO [Concomitant]
     Active Substance: DICLOFENAC SODIUM
     Indication: ARTHRALGIA
     Route: 048
     Dates: start: 20140915
  6. PRENESSA [Concomitant]
     Active Substance: PERINDOPRIL
     Indication: HYPERTENSION
     Route: 048
     Dates: start: 20141104, end: 20141130
  7. BLINDED MLN9708 [Suspect]
     Active Substance: IXAZOMIB
     Indication: PLASMA CELL MYELOMA
     Route: 048
     Dates: start: 20131111
  8. PEPCID [Concomitant]
     Active Substance: FAMOTIDINE
     Indication: PROPHYLAXIS AGAINST GASTROINTESTINAL ULCER
     Route: 048
     Dates: start: 20080701
  9. BLINDED MLN9708 [Suspect]
     Active Substance: IXAZOMIB
     Route: 048
     Dates: end: 20141130
  10. ANOPYRIN [Concomitant]
     Active Substance: ASPIRIN
     Indication: PROPHYLAXIS
     Route: 048
     Dates: start: 20131111
  11. PITOFENONI HYDROCHLORIDE [Concomitant]
     Indication: ARTHRALGIA
     Route: 048
     Dates: start: 20141009
  12. REVLIMID [Suspect]
     Active Substance: LENALIDOMIDE
     Indication: PLASMA CELL MYELOMA
     Route: 048
     Dates: start: 20131111
  13. DEXAMETHASONE. [Suspect]
     Active Substance: DEXAMETHASONE
     Route: 048
     Dates: end: 20141130
  14. METAMIZOLUM NATRICUM MONOHYDRICUM [Concomitant]
     Indication: ARTHRALGIA
     Route: 048
     Dates: start: 20141009
  15. VEROSPIRONE [Concomitant]
     Indication: HYPERTENSION
     Route: 048
     Dates: start: 20141104, end: 20141130
  16. AMITRYPTILIN [Concomitant]
     Indication: PROPHYLAXIS
     Route: 048
     Dates: start: 20141104, end: 20141130
  17. HELICID [Concomitant]
     Indication: PROPHYLAXIS AGAINST GASTROINTESTINAL ULCER
     Route: 048
     Dates: start: 20080701
  18. ALGIFEN NEO [Concomitant]
     Indication: PRODUCT USED FOR UNKNOWN INDICATION
     Dosage: 1 GRAM
     Route: 065
     Dates: start: 20131110, end: 20131113
  19. BONDRONAT [Concomitant]
     Active Substance: IBANDRONIC ACID
     Indication: PROPHYLAXIS
     Route: 041
     Dates: start: 20131111

REACTIONS (3)
  - Cardiac arrest [Fatal]
  - Bacterial sepsis [Fatal]
  - Arthralgia [Not Recovered/Not Resolved]

NARRATIVE: CASE EVENT DATE: 20141009
